FAERS Safety Report 21743157 (Version 1)
Quarter: 2022Q4

REPORT INFORMATION
  Report Type: Report from Study
  Country: PR (occurrence: PR)
  Receive Date: 20221217
  Receipt Date: 20221217
  Transmission Date: 20230112
  Serious: No
  Sender: FDA-Public Use
  Company Number: PR-ABBVIE-4234050

PATIENT
  Age: 26 Year
  Sex: Female

DRUGS (3)
  1. RITONAVIR [Suspect]
     Active Substance: RITONAVIR
     Indication: Product used for unknown indication
     Dosage: 100
     Route: 048
     Dates: start: 2021
  2. ABACAVIR\LAMIVUDINE [Suspect]
     Active Substance: ABACAVIR\LAMIVUDINE
     Indication: Product used for unknown indication
     Dosage: 225
     Route: 048
  3. ATAZANAVIR [Suspect]
     Active Substance: ATAZANAVIR
     Indication: Product used for unknown indication
     Dosage: 300
     Route: 048
     Dates: start: 2021

REACTIONS (2)
  - Maternal exposure during pregnancy [Unknown]
  - Live birth [Unknown]
